FAERS Safety Report 7155961-7 (Version None)
Quarter: 2010Q4

REPORT INFORMATION
  Report Type: 
  Country: None (occurrence: None)
  Receive Date: 20101123
  Receipt Date: 20100819
  Transmission Date: 20110411
  Serious: Yes (Other)
  Sender: FDA-Public Use
  Company Number: 017477

PATIENT
  Sex: Female

DRUGS (2)
  1. CIMZIA [Suspect]
     Dosage: (SUBCUTANEOUS)
     Route: 058
     Dates: start: 20100225
  2. MERCAPTOPURINE [Suspect]
     Dates: start: 20100701

REACTIONS (3)
  - ALOPECIA [None]
  - ARTHRALGIA [None]
  - MUSCLE DISORDER [None]
